FAERS Safety Report 23039619 (Version 1)
Quarter: 2023Q4

REPORT INFORMATION
  Report Type: Spontaneous
  Country: ES (occurrence: ES)
  Receive Date: 20231006
  Receipt Date: 20231006
  Transmission Date: 20240110
  Serious: Yes (Other)
  Sender: FDA-Public Use
  Company Number: ES-SUN PHARMACEUTICAL INDUSTRIES LTD-2023RR-411389

PATIENT
  Age: 62 Year
  Sex: Female
  Weight: 90 kg

DRUGS (30)
  1. ALPRAZOLAM [Interacting]
     Active Substance: ALPRAZOLAM
     Indication: Personality disorder
     Dosage: 0.5 MILLIGRAM, DAILY
     Route: 065
  2. VALSARTAN [Interacting]
     Active Substance: VALSARTAN
     Indication: Hypertension
     Dosage: 320 MILLIGRAM, DAILY, ONCE A DAY
     Route: 065
     Dates: start: 2014
  3. FUROSEMIDE [Suspect]
     Active Substance: FUROSEMIDE
     Indication: Hypertension
     Dosage: 40 MILLIGRAM, DAILY
     Route: 065
     Dates: start: 2014
  4. LORMETAZEPAM [Suspect]
     Active Substance: LORMETAZEPAM
     Indication: Personality disorder
     Dosage: 2 MILLIGRAM, DAILY
     Route: 065
  5. QUETIAPINE [Suspect]
     Active Substance: QUETIAPINE
     Indication: Personality disorder
     Dosage: 0.5 MILLIGRAM, DAILY
     Route: 065
  6. QUETIAPINE [Suspect]
     Active Substance: QUETIAPINE
     Route: 065
  7. MANIDIPINE [Suspect]
     Active Substance: MANIDIPINE
     Indication: Hypertension
     Dosage: 20 MILLIGRAM, DAILY
     Route: 065
     Dates: start: 2014
  8. PIMOZIDE [Suspect]
     Active Substance: PIMOZIDE
     Indication: Personality disorder
     Dosage: 1 MILLIGRAM, DAILY
     Route: 065
  9. GABAPENTIN [Suspect]
     Active Substance: GABAPENTIN
     Indication: Arthralgia
     Dosage: 900 MILLIGRAM, DAILY, 300 MG TID
     Route: 065
     Dates: start: 2019
  10. KETAZOLAM [Suspect]
     Active Substance: KETAZOLAM
     Indication: Hallucination
     Dosage: 15 MILLIGRAM, DAILY
     Route: 065
     Dates: start: 2016
  11. PRAMIPEXOLE [Suspect]
     Active Substance: PRAMIPEXOLE
     Indication: Parkinsonism
     Dosage: 1.05 MILLIGRAM, 1-0-0-0
     Route: 065
  12. PRAMIPEXOLE [Suspect]
     Active Substance: PRAMIPEXOLE
     Indication: Tremor
     Dosage: 1.05 MILLIGRAM
     Route: 065
  13. METFORMIN [Suspect]
     Active Substance: METFORMIN HYDROCHLORIDE
     Indication: Diabetes mellitus
     Dosage: 1000 MILLIGRAM, DAILY, 2000 MILLIGRAM DAILY
     Route: 065
     Dates: start: 2010
  14. METFORMIN [Suspect]
     Active Substance: METFORMIN HYDROCHLORIDE
     Dosage: 1.05 MILLIGRAM, DAILY
     Route: 065
  15. AMISULPRIDE [Concomitant]
     Active Substance: AMISULPRIDE
     Indication: Personality disorder
     Dosage: 100 MILLIGRAM
     Route: 065
  16. ACETAMINOPHEN\TRAMADOL [Concomitant]
     Active Substance: ACETAMINOPHEN\TRAMADOL
     Indication: Arthralgia
     Dosage: 75 MG/650 MG, 3 TIMES A DAY
     Route: 065
  17. EMPAGLIFLOZIN [Concomitant]
     Active Substance: EMPAGLIFLOZIN
     Indication: Hypertension
     Dosage: 1000 MG/5 MG (1-0-1-0), TWO TIMES A DAY
     Route: 065
  18. Glycopyrronium/Indacaterol [Concomitant]
     Indication: Chronic obstructive pulmonary disease
     Dosage: 85 UG/43 UG (1 UD/24H)
     Route: 065
  19. PANTOPRAZOLE [Concomitant]
     Active Substance: PANTOPRAZOLE
     Indication: Gastrooesophageal reflux disease
     Dosage: 40 MILLIGRAM, DAILY
     Route: 065
     Dates: start: 2016
  20. LIRAGLUTIDE [Concomitant]
     Active Substance: LIRAGLUTIDE
     Indication: Hypertension
     Dosage: 1 EVERY 7 DAYS
     Route: 065
  21. ACETAMINOPHEN [Concomitant]
     Active Substance: ACETAMINOPHEN
     Indication: Arthralgia
     Dosage: 650 MG PRESCRIBED: 1-1-1-0; USED: 1-1-1-0
     Route: 065
     Dates: start: 2019
  22. CALCIFEDIOL [Concomitant]
     Active Substance: CALCIFEDIOL
     Indication: Vitamin D deficiency
     Dosage: 0.27 MILLIGRAM, MONTHLY
     Route: 065
  23. ALBUTEROL [Concomitant]
     Active Substance: ALBUTEROL
     Indication: Chronic obstructive pulmonary disease
     Dosage: 100 MCG/IN
     Route: 065
     Dates: start: 2016
  24. LIRAGLUTIDE [Concomitant]
     Active Substance: LIRAGLUTIDE
     Indication: Diabetes mellitus
     Dosage: 6 MG/ML, 1 EVERY 7 DAYS
     Route: 065
  25. TRAMADOL [Concomitant]
     Active Substance: TRAMADOL\TRAMADOL HYDROCHLORIDE
     Indication: Arthralgia
     Dosage: 75 MG
     Route: 065
  26. TRAMADOL [Concomitant]
     Active Substance: TRAMADOL\TRAMADOL HYDROCHLORIDE
     Route: 065
  27. ATORVASTATIN [Concomitant]
     Active Substance: ATORVASTATIN
     Indication: Hypercholesterolaemia
     Dosage: 40 MILLIGRAM, DAILY
     Route: 065
  28. CLOPIDOGREL [Concomitant]
     Active Substance: CLOPIDOGREL BISULFATE
     Indication: Cerebrovascular accident
     Dosage: 75 MILLIGRAM, DAILY
     Route: 065
     Dates: start: 2018
  29. EMPAGLIFLOZIN\METFORMIN HYDROCHLORIDE [Concomitant]
     Active Substance: EMPAGLIFLOZIN\METFORMIN HYDROCHLORIDE
     Indication: Diabetes mellitus
     Dosage: 1000 MG/5 MG BID
     Route: 065
  30. VORTIOXETINE [Concomitant]
     Active Substance: VORTIOXETINE
     Indication: Personality disorder
     Dosage: 15 MILLIGRAM, DAILY
     Route: 065

REACTIONS (5)
  - Hypotension [Recovered/Resolved]
  - Hallucination [Recovered/Resolved]
  - Parkinsonism [Recovered/Resolved]
  - Somnolence [Recovered/Resolved]
  - Hypoglycaemia [Recovered/Resolved]
